FAERS Safety Report 15391085 (Version 1)
Quarter: 2018Q3

REPORT INFORMATION
  Report Type: Spontaneous
  Country: US (occurrence: US)
  Receive Date: 20180910
  Receipt Date: 20180910
  Transmission Date: 20181010
  Serious: No
  Sender: FDA-Public Use
  Company Number: None

PATIENT
  Age: 20 Year
  Sex: Female

DRUGS (1)
  1. TALTZ [Suspect]
     Active Substance: IXEKIZUMAB
     Indication: PSORIASIS
     Dosage: INJECT 89MG (1 PEN) SUBCUTANELUSLY EVERY 2 WEEKS AT WEEKS 2?12 AS DIRECTED
     Route: 058
     Dates: start: 201808

REACTIONS (1)
  - Loss of consciousness [None]
